FAERS Safety Report 14996549 (Version 7)
Quarter: 2019Q4

REPORT INFORMATION
  Report Type: Spontaneous
  Country: CA (occurrence: CA)
  Receive Date: 20180611
  Receipt Date: 20191207
  Transmission Date: 20200122
  Serious: Yes (Hospitalization, Other)
  Sender: FDA-Public Use
  Company Number: CA-CELLTRION INC.-2018CA020505

PATIENT

DRUGS (58)
  1. SPIRONOLACTONE. [Concomitant]
     Active Substance: SPIRONOLACTONE
     Dosage: 25 MG, 1X/DAY
     Route: 048
  2. RISEDRONATE [Concomitant]
     Active Substance: RISEDRONATE SODIUM
     Indication: OSTEOPOROSIS
     Dosage: 35 MG, WEEKLY
     Route: 048
  3. PRESERVISION AREDS 2 [Concomitant]
     Active Substance: MINERALS\VITAMINS
     Dosage: 2 DF, 1X/DAY
     Route: 048
  4. ATORVASTATIN [Concomitant]
     Active Substance: ATORVASTATIN
     Dosage: 10 MG, BED TIME
     Route: 048
  5. OXAZEPAM. [Concomitant]
     Active Substance: OXAZEPAM
     Indication: INSOMNIA
     Dosage: 15 MG, BED TIME
     Route: 048
  6. NASONEX [Concomitant]
     Active Substance: MOMETASONE FUROATE
     Dosage: 2 DF, 2X/DAY IN EACH NOSTRIL
     Route: 055
  7. PYRIDIUM [Concomitant]
     Active Substance: PHENAZOPYRIDINE
     Dosage: QD
     Route: 048
  8. AVELOX [Concomitant]
     Active Substance: MOXIFLOXACIN HYDROCHLORIDE
     Dosage: 400 MG, 1X/DAY FOR 10 DAYS
     Route: 048
  9. TOMA [Concomitant]
     Indication: NAUSEA
     Dosage: AT 50-100MG Q (EVERY) 4-6 HOURS
     Route: 048
  10. INFLECTRA [Suspect]
     Active Substance: INFLIXIMAB-DYYB
     Dosage: 5 MG/KG, 0, 2, 6, THEN EVERY 8 WEEKS
     Route: 042
     Dates: start: 20180611, end: 20180611
  11. INFLECTRA [Suspect]
     Active Substance: INFLIXIMAB-DYYB
     Dosage: 5 MG/KG, 0, 2, 6, THEN EVERY 8 WEEKS
     Route: 042
     Dates: start: 20190611
  12. INFLECTRA [Suspect]
     Active Substance: INFLIXIMAB-DYYB
     Dosage: 5 MG/KG, 0, 2, 6, THEN EVERY 8 WEEKS
     Route: 042
     Dates: start: 20191125
  13. CALCIUM + VITAMIN D  [CALCIUM CARBONATE;COLECALCIFEROL] [Concomitant]
     Dosage: 1 DF, 2X/DAY (500 MG/400 UI TABLET)
     Route: 048
  14. DILTIAZEM T [Concomitant]
     Indication: BLOOD PRESSURE MEASUREMENT
     Dosage: 360 MG, 1X/DAY
     Route: 048
  15. CLOTRIMADERM [Concomitant]
     Active Substance: CLOTRIMAZOLE
     Indication: ANTIFUNGAL TREATMENT
     Dosage: 1 %, 2X/DAY ON VULVA FOR 7 DAYS
     Route: 061
  16. TUDORZA GENUAIR [Concomitant]
     Active Substance: ACLIDINIUM BROMIDE
     Dosage: 1 DF, 2X/DAY
     Route: 055
  17. EMCORT [Concomitant]
     Indication: HAEMORRHOIDS
     Dosage: 0.5 %, TID (AFTER EACH BOWEL MOVEMENT)
     Route: 061
  18. INFLECTRA [Suspect]
     Active Substance: INFLIXIMAB-DYYB
     Dosage: 5 MG/KG, 0, 2, 6, THEN EVERY 8 WEEKS
     Route: 042
     Dates: start: 20190416
  19. FLOVENT HFA [Concomitant]
     Active Substance: FLUTICASONE PROPIONATE
     Dosage: 2 DF(125MCG), UNK
     Route: 048
  20. AMOXI-CLAV [Concomitant]
     Active Substance: AMOXICILLIN\CLAVULANATE POTASSIUM
     Dosage: 1 DF, 2X/DAY FOR 10 DAYS(875MG+125MG)
     Route: 048
  21. CIPROFLOXACIN. [Concomitant]
     Active Substance: CIPROFLOXACIN
     Dosage: 250 MG, 2X/DAY FOR 7 DAYS
     Route: 048
  22. CIPRO XL [Concomitant]
     Active Substance: CIPROFLOXACIN\CIPROFLOXACIN HYDROCHLORIDE
     Dosage: 500 MG, 1X/DAY FOR 7 DAYS
     Route: 048
  23. VOLTAREN EMULGEL [Concomitant]
     Active Substance: DICLOFENAC DIETHYLAMINE
     Indication: PAIN
     Dosage: 1.16% GEL APPLY LOCALLY 3-4 TIMES A DAY AS NEEDED
     Route: 061
  24. NITRO SL SPRAY [Concomitant]
     Dosage: 0.4MG - 1PUFF SUBLINGUAL IF ANGINA AND REPEAT EVERY 5 MINUTES AS NEEDED
     Route: 060
  25. CLARITHROMYCIN XL [Concomitant]
     Active Substance: CLARITHROMYCIN
     Dosage: 500MG 2 TABLETS AFTER MEAL FOR 10 DAYS
     Route: 048
  26. INFLECTRA [Suspect]
     Active Substance: INFLIXIMAB-DYYB
     Dosage: 5 MG/KG, 0, 2, 6, THEN EVERY 8 WEEKS
     Route: 042
     Dates: start: 20181031
  27. CELEBREX [Concomitant]
     Active Substance: CELECOXIB
     Indication: SWELLING
     Dosage: 200 MG, BID, FOR 10 DAYS
     Route: 048
  28. AVAMYS [Concomitant]
     Active Substance: FLUTICASONE FUROATE
     Dosage: 2 DF, AS NEEDED (I EACH NOSTRIL 1XDAY AS NEEDED)
     Route: 045
  29. SALBUTAMOL HFA [Concomitant]
     Active Substance: ALBUTEROL
     Indication: ASTHMA
     Dosage: 2 DF, 4X/DAY (100MCGDOSE) AS NEEDED
     Route: 055
  30. SALBUTAMOL HFA [Concomitant]
     Active Substance: ALBUTEROL
     Dosage: 100 MCG 2 INHALATIONS FOUR TIMES DAILY AS NEEDED
  31. DICYCLOMINE [Concomitant]
     Active Substance: DICYCLOMINE HYDROCHLORIDE
     Indication: MUSCLE SPASMS
     Dosage: UNK
  32. MOMETASONE [Concomitant]
     Active Substance: MOMETASONE
     Dosage: 5 DF, 2X/DAY (AS NEEDED)
     Route: 045
  33. ALVESCO [Concomitant]
     Active Substance: CICLESONIDE
     Dosage: 2 DF, 1X/DAY
     Route: 055
  34. INFLECTRA [Suspect]
     Active Substance: INFLIXIMAB-DYYB
     Dosage: 5 MG/KG, 0, 2, 6, THEN EVERY 8 WEEKS
     Route: 042
     Dates: start: 20180710
  35. CELEBREX [Concomitant]
     Active Substance: CELECOXIB
     Indication: PAIN
     Dosage: UNK
  36. PREDNISONE. [Concomitant]
     Active Substance: PREDNISONE
     Dosage: 40 MG, 5 DAYS THEN USE CALENDAR
     Route: 048
  37. SYMBICORT [Concomitant]
     Active Substance: BUDESONIDE\FORMOTEROL FUMARATE DIHYDRATE
     Dosage: 1 DF, 2X/DAY (6+200MCG)
     Route: 055
  38. CEFPROZIL. [Concomitant]
     Active Substance: CEFPROZIL
     Dosage: 1250 DF, 2X/DAY FOR 10 DAYS
     Route: 048
  39. CEFPROZIL. [Concomitant]
     Active Substance: CEFPROZIL
     Dosage: 500 MG, UNK(1 TABLET BID FOR 12H FOR 10 DAYS)
     Route: 048
  40. INFLECTRA [Suspect]
     Active Substance: INFLIXIMAB-DYYB
     Indication: COLITIS ULCERATIVE
     Dosage: 5 MG/KG, 0, 2, 6, THEN EVERY 8 WEEKS
     Route: 042
     Dates: start: 20180518
  41. INFLECTRA [Suspect]
     Active Substance: INFLIXIMAB-DYYB
     Dosage: 5 MG/KG, 0, 2, 6, THEN EVERY 8 WEEKS
     Route: 042
     Dates: start: 20180905
  42. PREDNISONE. [Concomitant]
     Active Substance: PREDNISONE
     Dosage: 50 MG OD 81XDAY) FOR 5 DAYS, THEN 1/2 TABLET FOR 5 DAYS
     Route: 048
  43. BISACODYL. [Concomitant]
     Active Substance: BISACODYL
     Dosage: 10 MG, BEFORE EXAM(TABLETS HS)
     Route: 048
  44. COLYTE [MACROGOL 3350;POTASSIUM CHLORIDE;SODIUM BICARBONATE;SODIUM CHL [Concomitant]
     Dosage: AS DIRECTED BY PHARMACIST
     Route: 048
  45. MOMETASONE [Concomitant]
     Active Substance: MOMETASONE
     Dosage: 50 UG, 2X/DAY(NASAL PUFFS IN EACH NOSTRIL PRN)
     Route: 045
  46. PROBACLAC [Concomitant]
     Dosage: 2 DF, 2X/DAY
     Route: 048
  47. LEVOFLOXACIN. [Concomitant]
     Active Substance: LEVOFLOXACIN
     Dosage: 500 MG, 1X/DAY FOR 7 DAYS
     Route: 048
  48. ADVAIR HFA [Concomitant]
     Active Substance: FLUTICASONE PROPIONATE\SALMETEROL XINAFOATE
     Dosage: 1 DF, 2X/DAY
     Route: 055
  49. INFLECTRA [Suspect]
     Active Substance: INFLIXIMAB-DYYB
     Dosage: 5 MG/KG, 0, 2, 6, THEN EVERY 8 WEEKS
     Route: 042
     Dates: start: 20191004
  50. PANTOPRAZOLE [Concomitant]
     Active Substance: PANTOPRAZOLE
     Dosage: 40 MG, 1X/DAY
     Route: 048
  51. ASPIRIN 81 [Concomitant]
     Active Substance: ASPIRIN
     Indication: BLOOD DISORDER
     Dosage: 80 MG, 1X/DAY
     Route: 048
  52. LACTIBIANE [Concomitant]
     Dosage: 1 DF, AS NEEDED(OD)
     Route: 065
  53. CLOTRIMADERM [Concomitant]
     Active Substance: CLOTRIMAZOLE
     Dosage: 1% CREAM APPLY LOCALLY TWICE DAILY ON VULVA FOR 7 DAYS
  54. MOXIFLOXACIN. [Concomitant]
     Active Substance: MOXIFLOXACIN
     Dosage: 400 MG, 1X/DAY FOR 10 DAYS
     Route: 048
  55. ADVAIR HFA [Concomitant]
     Active Substance: FLUTICASONE PROPIONATE\SALMETEROL XINAFOATE
     Dosage: 2 DF, 2X/DAY
     Route: 055
  56. DICYCLOMINE [Concomitant]
     Active Substance: DICYCLOMINE HYDROCHLORIDE
     Indication: PAIN
     Dosage: 20 MG, AS NEEDED(Q4-6H)
     Route: 048
  57. COLYTE [MACROGOL 3350;POTASSIUM CHLORIDE;SODIUM BICARBONATE;SODIUM CHL [Concomitant]
     Dosage: AS DIRECTED BY PHARMACIST
     Route: 065
  58. OCUVITE [ASCORBIC ACID;RETINOL;TOCOPHEROL] [Concomitant]
     Dosage: 1 DF, 2X/DAY
     Route: 048

REACTIONS (15)
  - Ear discomfort [Not Recovered/Not Resolved]
  - Feeling abnormal [Not Recovered/Not Resolved]
  - Musculoskeletal chest pain [Not Recovered/Not Resolved]
  - Vomiting [Unknown]
  - Alopecia [Unknown]
  - Blood pressure decreased [Unknown]
  - Pain in extremity [Unknown]
  - Aphonia [Unknown]
  - Dizziness [Unknown]
  - Muscle spasms [Unknown]
  - Sinusitis [Recovered/Resolved]
  - Contusion [Unknown]
  - Pneumonia [Recovered/Resolved]
  - Ageusia [Not Recovered/Not Resolved]
  - Cough [Not Recovered/Not Resolved]

NARRATIVE: CASE EVENT DATE: 201805
